FAERS Safety Report 23165783 (Version 1)
Quarter: 2023Q4

REPORT INFORMATION
  Report Type: Spontaneous
  Country: US (occurrence: None)
  Receive Date: 20231108
  Receipt Date: 20231108
  Transmission Date: 20240110
  Serious: Yes (Life-Threatening)
  Sender: FDA-Public Use
  Company Number: None

PATIENT
  Age: 81 Year
  Sex: Male
  Weight: 102 kg

DRUGS (8)
  1. HEPARIN [Suspect]
     Active Substance: HEPARIN SODIUM
     Dosage: FREQUENCY : 3 TIMES A DAY;?
     Route: 058
     Dates: start: 20231029, end: 20231101
  2. Epinephrine IV continuous infusion - titratable [Concomitant]
     Dates: start: 20231026, end: 20231027
  3. Vasopressin IV continuous infusion [Concomitant]
     Dates: start: 20231027, end: 20231027
  4. Phenylephrine IV continuous infusion - titratable [Concomitant]
     Dates: start: 20231030, end: 20231031
  5. Norepinephrine continuous infusion - titratable [Concomitant]
     Dates: start: 20231026, end: 20231030
  6. Midodrine 10 mg PO TID [Concomitant]
     Dates: start: 20231027, end: 20231031
  7. Pseudoephedrine 30 mg PO Q6H [Concomitant]
     Dates: start: 20231028, end: 20231030
  8. Pseudoephedrine 60 mg PO Q6H [Concomitant]
     Dates: start: 20231030, end: 20231101

REACTIONS (4)
  - Cough [None]
  - Subdural haemorrhage [None]
  - Intraventricular haemorrhage [None]
  - Fracture [None]

NARRATIVE: CASE EVENT DATE: 20231102
